FAERS Safety Report 5378759-9 (Version None)
Quarter: 2007Q3

REPORT INFORMATION
  Report Type: 
  Country: None (occurrence: None)
  Receive Date: 20070705
  Receipt Date: 20070625
  Transmission Date: 20080115
  Serious: Yes (Hospitalization)
  Sender: FDA-Public Use
  Company Number: B0477633A

PATIENT
  Age: 58 Year
  Sex: Male

DRUGS (7)
  1. AUGMENTIN '125' [Suspect]
     Indication: SYSTEMIC ANTIBACTERIAL THERAPY
     Route: 048
     Dates: start: 20070516, end: 20070523
  2. SLIMMING TABLETS [Suspect]
  3. DIGOXIN [Concomitant]
  4. ENALAPRIL [Concomitant]
  5. VEROSPIRON [Concomitant]
  6. SEDACORON [Concomitant]
  7. FURON [Concomitant]
     Dates: start: 20070507, end: 20070527

REACTIONS (7)
  - ERYTHEMA [None]
  - LICHENIFICATION [None]
  - PITYRIASIS [None]
  - RASH GENERALISED [None]
  - RASH MACULO-PAPULAR [None]
  - SKIN EXFOLIATION [None]
  - TOXIC SKIN ERUPTION [None]
